FAERS Safety Report 15401451 (Version 1)
Quarter: 2018Q3

REPORT INFORMATION
  Report Type: Spontaneous
  Country: US (occurrence: US)
  Receive Date: 20180914
  Receipt Date: 20180914
  Transmission Date: 20181010
  Serious: Yes (Other)
  Sender: FDA-Public Use
  Company Number: None

PATIENT
  Age: 42 Year
  Sex: Female
  Weight: 53.07 kg

DRUGS (13)
  1. VITAMIN B12 [Concomitant]
     Active Substance: CYANOCOBALAMIN
  2. ZOMIG [Concomitant]
     Active Substance: ZOLMITRIPTAN
  3. TLI CON [Concomitant]
  4. ORGANIC GREEN SHAKE [Concomitant]
  5. TOPAMAX [Concomitant]
     Active Substance: TOPIRAMATE
  6. VITAMIN D [Concomitant]
     Active Substance: CHOLECALCIFEROL
  7. MIRALAX [Concomitant]
     Active Substance: POLYETHYLENE GLYCOL 3350
  8. SYNTHROID [Concomitant]
     Active Substance: LEVOTHYROXINE SODIUM
  9. LINESS [Concomitant]
  10. VALUME [Concomitant]
  11. VIACTIVE CALCIUM CHEWS [Concomitant]
  12. AIMOVIG [Suspect]
     Active Substance: ERENUMAB-AOOE
     Indication: MIGRAINE PROPHYLAXIS
     Dosage: ?          QUANTITY:2 DF DOSAGE FORM;?
     Route: 058
     Dates: start: 20180806
  13. ALIEVE [Concomitant]

REACTIONS (8)
  - Urticaria [None]
  - Fatigue [None]
  - Gastrointestinal disorder [None]
  - Food craving [None]
  - Pruritus [None]
  - Rash [None]
  - Drug interaction [None]
  - Weight increased [None]

NARRATIVE: CASE EVENT DATE: 20180822
